FAERS Safety Report 17641236 (Version 2)
Quarter: 2020Q2

REPORT INFORMATION
  Report Type: Report from Study
  Country: KR (occurrence: KR)
  Receive Date: 20200407
  Receipt Date: 20200413
  Transmission Date: 20200713
  Serious: No
  Sender: FDA-Public Use
  Company Number: NVSC2020KR093262

PATIENT
  Age: 54 Year
  Sex: Male

DRUGS (20)
  1. POLYBUTINE [Concomitant]
     Indication: GASTRITIS PROPHYLAXIS
     Dosage: 300 UNK, BID
     Route: 065
     Dates: start: 20200113
  2. THIOCTACID [Concomitant]
     Active Substance: .ALPHA.-LIPOIC ACID
     Indication: DIABETIC NEUROPATHY
     Dosage: 600 MG, QD
     Route: 048
     Dates: start: 20180917
  3. REVOLADE [Suspect]
     Active Substance: ELTROMBOPAG
     Indication: APLASTIC ANAEMIA
     Dosage: 50 MG, QD
     Route: 048
     Dates: start: 20200204, end: 20200218
  4. REVOLADE [Suspect]
     Active Substance: ELTROMBOPAG
     Dosage: 100 MG, QD
     Route: 048
     Dates: start: 20200303
  5. TARGIN [Concomitant]
     Active Substance: NALOXONE HYDROCHLORIDE\OXYCODONE HYDROCHLORIDE
     Indication: PAIN
     Dosage: 1 DF, BID
     Route: 048
     Dates: start: 20191122
  6. CHLORPHENAMINE MALEATE [Concomitant]
     Active Substance: CHLORPHENIRAMINE MALEATE
     Indication: PREMEDICATION
     Dosage: 4 MG, PRN
     Route: 042
     Dates: start: 20180731
  7. TRAST [Concomitant]
     Indication: PAIN
     Dosage: 48 MG, PRN (EXTERNAL PATCH)
     Route: 050
     Dates: start: 20200317
  8. TRAJENTA DUO [Concomitant]
     Active Substance: LINAGLIPTIN\METFORMIN HYDROCHLORIDE
     Indication: DIABETES MELLITUS
     Dosage: 1 DF, BID
     Route: 048
  9. VASTINAN MR [Concomitant]
     Indication: ANGINA PECTORIS
     Dosage: 35 MG, BID
     Route: 048
     Dates: start: 20160722
  10. IRCODON [Concomitant]
     Active Substance: OXYCODONE HYDROCHLORIDE
     Indication: PAIN
     Dosage: 10 MG, PRN
     Route: 065
     Dates: start: 20200103
  11. FOLIC ACID. [Concomitant]
     Active Substance: FOLIC ACID
     Indication: APLASTIC ANAEMIA
     Dosage: 2 MG, TID
     Route: 048
     Dates: start: 20200129
  12. REVOLADE [Suspect]
     Active Substance: ELTROMBOPAG
     Dosage: 75 MG, QD
     Route: 048
     Dates: start: 20200219, end: 20200302
  13. NEXIUM [Concomitant]
     Active Substance: ESOMEPRAZOLE MAGNESIUM
     Indication: GASTRITIS PROPHYLAXIS
     Dosage: 20 MG, QD
     Route: 048
     Dates: start: 20140827
  14. THIAMIN HCL [Concomitant]
     Indication: APLASTIC ANAEMIA
     Dosage: 10 MG, TID
     Route: 048
     Dates: start: 20191122
  15. DIAMICRON MR [Concomitant]
     Active Substance: GLICLAZIDE
     Indication: DIABETES MELLITUS
     Dosage: 30 MG, QD
     Route: 065
     Dates: start: 20181227
  16. ADENOCOR [Concomitant]
     Indication: PRODUCT USED FOR UNKNOWN INDICATION
     Dosage: 6 MG, QD
     Route: 042
     Dates: start: 20200318, end: 20200318
  17. TAMIPOOL [Concomitant]
     Active Substance: VITAMINS
     Indication: ASTHENIA
     Dosage: 1 VIAL, QD
     Route: 042
     Dates: start: 20200313, end: 20200320
  18. GODEX [Concomitant]
     Indication: ASPARTATE AMINOTRANSFERASE INCREASED
     Dosage: 1 DF
     Route: 065
     Dates: start: 20200129
  19. WINUF [Concomitant]
     Indication: ASTHENIA
     Dosage: 1085 ML, QD
     Route: 042
     Dates: start: 20200313, end: 20200320
  20. HUMULIN N [Concomitant]
     Active Substance: INSULIN HUMAN
     Indication: DIABETES MELLITUS
     Dosage: 10 IU, QD
     Route: 042
     Dates: start: 20200313, end: 20200320

REACTIONS (4)
  - Diarrhoea [Recovered/Resolved]
  - Testicular pain [Recovering/Resolving]
  - Supraventricular tachycardia [Recovering/Resolving]
  - Toothache [Recovering/Resolving]

NARRATIVE: CASE EVENT DATE: 20200301
